FAERS Safety Report 24461301 (Version 1)
Quarter: 2024Q4

REPORT INFORMATION
  Report Type: Spontaneous
  Country: CN (occurrence: CN)
  Receive Date: 20241018
  Receipt Date: 20241018
  Transmission Date: 20250114
  Serious: No
  Sender: ROCHE
  Company Number: CN-ROCHE-3575294

PATIENT
  Age: 78 Year
  Sex: Female

DRUGS (1)
  1. MABTHERA [Suspect]
     Active Substance: RITUXIMAB
     Indication: B-cell lymphoma stage III
     Route: 041
     Dates: start: 20240522, end: 20240522

REACTIONS (1)
  - Chills [Recovering/Resolving]

NARRATIVE: CASE EVENT DATE: 20240522
